FAERS Safety Report 13687501 (Version 1)
Quarter: 2017Q2

REPORT INFORMATION
  Report Type: Spontaneous
  Country: US (occurrence: US)
  Receive Date: 20170624
  Receipt Date: 20170624
  Transmission Date: 20170830
  Serious: Yes (Other)
  Sender: FDA-Public Use
  Company Number: US-ZYDUS-015578

PATIENT
  Age: 63 Year
  Sex: Male

DRUGS (1)
  1. AZATHIOPRINE. [Suspect]
     Active Substance: AZATHIOPRINE
     Indication: IMMUNOSUPPRESSANT DRUG THERAPY
     Route: 065

REACTIONS (3)
  - Diaphragmatic paralysis [Unknown]
  - Adenocarcinoma of colon [Unknown]
  - Lymphadenopathy [Unknown]
